FAERS Safety Report 14088690 (Version 2)
Quarter: 2017Q4

REPORT INFORMATION
  Report Type: Report from Study
  Country: None (occurrence: GR)
  Receive Date: 20171013
  Receipt Date: 20171019
  Transmission Date: 20180321
  Serious: Yes (Death, Life-Threatening, Hospitalization)
  Sender: FDA-Public Use
  Company Number: GR-ABBVIE-17P-066-2125311-00

PATIENT
  Age: 34 Year
  Sex: Female

DRUGS (2)
  1. VENETOCLAX. [Suspect]
     Active Substance: VENETOCLAX
     Route: 048
  2. VENETOCLAX. [Suspect]
     Active Substance: VENETOCLAX
     Indication: ACUTE MYELOID LEUKAEMIA
     Route: 048
     Dates: start: 20170919

REACTIONS (5)
  - Off label use [Not Recovered/Not Resolved]
  - Death [Fatal]
  - Respiratory failure [Not Recovered/Not Resolved]
  - Endotracheal intubation [Not Recovered/Not Resolved]
  - Pulmonary cavitation [Not Recovered/Not Resolved]

NARRATIVE: CASE EVENT DATE: 20171009
